FAERS Safety Report 4579217-1 (Version None)
Quarter: 2005Q1

REPORT INFORMATION
  Report Type: 
  Country: None (occurrence: None)
  Receive Date: 20050208
  Receipt Date: 20050208
  Transmission Date: 20050727
  Serious: Yes (Other)
  Sender: FDA-Public Use
  Company Number: None

PATIENT
  Age: 45 Year
  Sex: Male

DRUGS (1)
  1. TIBIALSIS TENDON   MTF [Suspect]
     Indication: SHOULDER OPERATION

REACTIONS (2)
  - COMPLICATIONS OF TRANSPLANT SURGERY [None]
  - SALMONELLOSIS [None]
